FAERS Safety Report 5497950-4 (Version None)
Quarter: 2007Q4

REPORT INFORMATION
  Report Type: 
  Country: None (occurrence: None)
  Receive Date: 20071025
  Receipt Date: 20071017
  Transmission Date: 20080405
  Serious: Yes (Death)
  Sender: FDA-Public Use
  Company Number: US-SANOFI-SYNTHELABO-A03200706039

PATIENT
  Sex: Female

DRUGS (2)
  1. ELOXATIN [Suspect]
     Indication: DRUG USE FOR UNKNOWN INDICATION
     Route: 042
     Dates: start: 20071010, end: 20071010
  2. ELOXATIN [Suspect]
     Route: 042
     Dates: start: 20071010, end: 20071010

REACTIONS (5)
  - DEATH [None]
  - FEELING ABNORMAL [None]
  - FEELING HOT [None]
  - LOSS OF CONSCIOUSNESS [None]
  - VISION BLURRED [None]
